FAERS Safety Report 8943330 (Version 2)
Quarter: 2012Q4

REPORT INFORMATION
  Report Type: 
  Country: HU (occurrence: HU)
  Receive Date: 20121204
  Receipt Date: 20121220
  Transmission Date: 20130627
  Serious: Yes (Death, Other)
  Sender: FDA-Public Use
  Company Number: HU-ELI_LILLY_AND_COMPANY-HU201211009503

PATIENT
  Age: 44 Year
  Sex: Male

DRUGS (3)
  1. ALIMTA [Suspect]
     Indication: LUNG NEOPLASM MALIGNANT
     Dosage: UNK
     Route: 042
     Dates: start: 2012
  2. VITAMIN B12 [Concomitant]
  3. FOLIC ACID [Concomitant]

REACTIONS (2)
  - Haemorrhage [Fatal]
  - Vessel perforation [Not Recovered/Not Resolved]
